FAERS Safety Report 21986702 (Version 1)
Quarter: 2023Q1

REPORT INFORMATION
  Report Type: Report from Study
  Country: NL (occurrence: NL)
  Receive Date: 20230213
  Receipt Date: 20230213
  Transmission Date: 20230417
  Serious: Yes (Hospitalization, Other)
  Sender: FDA-Public Use
  Company Number: NL-TEVA-2022-NL-2075691

PATIENT
  Age: 26 Year
  Sex: Female

DRUGS (5)
  1. GLATIRAMER ACETATE [Suspect]
     Active Substance: GLATIRAMER ACETATE
     Indication: Product used for unknown indication
     Dosage: UNK
     Route: 065
  2. COPAXONE [Suspect]
     Active Substance: GLATIRAMER ACETATE
     Indication: Relapsing multiple sclerosis
     Dosage: UNK
     Route: 058
     Dates: start: 2022
  3. IMMUNE GLOBULIN NOS [Concomitant]
     Active Substance: IMMUNE GLOBULIN NOS
     Indication: Multiple sclerosis
     Dosage: A TOTAL OF SIX TIMES (Q4W)
     Route: 065
     Dates: start: 202210
  4. POLYETHYLENE GLYCOLS [Concomitant]
     Active Substance: POLYETHYLENE GLYCOLS
     Indication: Product used for unknown indication
     Dosage: 10 GRAM DAILY
     Route: 048
     Dates: start: 202108
  5. SODIUM CITRATE\SODIUM LAURYL SULFOACETATE\SORBITOL [Concomitant]
     Active Substance: SODIUM CITRATE\SODIUM LAURYL SULFOACETATE\SORBITOL
     Indication: Product used for unknown indication
     Dosage: 5 MILLIGRAM, QD
     Route: 054
     Dates: start: 202108

REACTIONS (19)
  - Procedural haemorrhage [Unknown]
  - Multiple sclerosis [Unknown]
  - Feeling hot [Recovered/Resolved]
  - Breech presentation [Recovered/Resolved]
  - Live birth [Unknown]
  - Skin warm [Unknown]
  - Contusion [Unknown]
  - Injection site irritation [Not Recovered/Not Resolved]
  - Erythema [Unknown]
  - Chills [Recovered/Resolved]
  - Arthralgia [Recovered/Resolved]
  - Oral herpes [Unknown]
  - Pain [Unknown]
  - Hyperhidrosis [Recovered/Resolved]
  - Rash [Unknown]
  - Palpitations [Recovered/Resolved]
  - Rash macular [Recovered/Resolved]
  - Dyspnoea [Recovered/Resolved]
  - Maternal exposure during pregnancy [Unknown]

NARRATIVE: CASE EVENT DATE: 20211027
